FAERS Safety Report 9633317 (Version 1)
Quarter: 2013Q4

REPORT INFORMATION
  Report Type: Spontaneous
  Country: US (occurrence: US)
  Receive Date: 20131021
  Receipt Date: 20131021
  Transmission Date: 20140711
  Serious: Yes (Death, Other)
  Sender: FDA-Public Use
  Company Number: US-CELGENEUS-163-20785-13102907

PATIENT
  Sex: 0

DRUGS (7)
  1. THALOMID [Suspect]
     Indication: EWING^S SARCOMA RECURRENT
     Dosage: 50 MILLIGRAM
     Route: 048
  2. THALOMID [Suspect]
     Dosage: 50MG TO MAX OF 1,000MG
     Route: 048
  3. CELECOXIB [Suspect]
     Indication: EWING^S SARCOMA RECURRENT
     Dosage: 200 MILLIGRAM
     Route: 065
  4. CELECOXIB [Suspect]
     Dosage: 200-400MG
     Route: 065
  5. FENOFIBRATE [Suspect]
     Indication: EWING^S SARCOMA RECURRENT
     Dosage: 90 MILLIGRAM/SQ. METER
     Route: 065
  6. CYCLOPHOSPHAMIDE [Suspect]
     Indication: EWING^S SARCOMA RECURRENT
     Dosage: 2.5 MILLIGRAM/KILOGRAM
     Route: 065
  7. ETOPOSIDE [Suspect]
     Indication: EWING^S SARCOMA RECURRENT
     Dosage: 50 MILLIGRAM/SQ. METER
     Route: 065

REACTIONS (5)
  - Death [Fatal]
  - Acute respiratory distress syndrome [Unknown]
  - Enterococcal bacteraemia [Unknown]
  - Neutropenia [Unknown]
  - General physical health deterioration [Unknown]
